FAERS Safety Report 12203155 (Version 1)
Quarter: 2016Q1

REPORT INFORMATION
  Report Type: Spontaneous
  Country: US (occurrence: None)
  Receive Date: 20160321
  Receipt Date: 20160321
  Transmission Date: 20160526
  Serious: No
  Sender: FDA-Public Use
  Company Number: None

PATIENT
  Age: 76 Year
  Sex: Male

DRUGS (8)
  1. TASIGNA [Suspect]
     Active Substance: NILOTINIB
     Indication: ACUTE LEUKAEMIA
     Dosage: 1 CAP
     Route: 048
     Dates: start: 200903
  2. HYDROCHLOR [Concomitant]
  3. POT CHLOR [Concomitant]
  4. AMLODIPINE [Concomitant]
     Active Substance: AMLODIPINE BESYLATE
  5. VITAMIN B12 [Concomitant]
     Active Substance: CYANOCOBALAMIN
  6. OMPRAZOLE [Concomitant]
     Active Substance: OMEPRAZOLE
  7. NORVASC [Concomitant]
     Active Substance: AMLODIPINE BESYLATE
  8. ASP [Concomitant]
     Active Substance: ASPIRIN

REACTIONS (2)
  - Constipation [None]
  - Fatigue [None]

NARRATIVE: CASE EVENT DATE: 20150713
